FAERS Safety Report 5149425-X (Version None)
Quarter: 2006Q4

REPORT INFORMATION
  Report Type: 
  Country: None (occurrence: None)
  Receive Date: 20061113
  Receipt Date: 20060109
  Transmission Date: 20070319
  Serious: No
  Sender: FDA-Public Use
  Company Number: 431426

PATIENT
  Age: 66 Year
  Sex: Female

DRUGS (4)
  1. COREG [Suspect]
     Dosage: 25MG TWICE PER DAY
     Route: 048
  2. ALTACE [Concomitant]
  3. ZETIA [Concomitant]
  4. LIPITOR [Concomitant]

REACTIONS (2)
  - ARTERIAL INSUFFICIENCY [None]
  - PAIN IN EXTREMITY [None]
